FAERS Safety Report 4411698-6 (Version None)
Quarter: 2004Q3

REPORT INFORMATION
  Report Type: 
  Country: None (occurrence: None)
  Receive Date: 20040730
  Receipt Date: 20040722
  Transmission Date: 20050211
  Serious: Yes (Death)
  Sender: FDA-Public Use
  Company Number: US-AMGEN-US084554

PATIENT
  Sex: Male

DRUGS (1)
  1. PROCRIT [Suspect]
     Indication: ANAEMIA OF MALIGNANT DISEASE
     Route: 058
     Dates: start: 20040101

REACTIONS (3)
  - CONDITION AGGRAVATED [None]
  - MALIGNANT NEOPLASM PROGRESSION [None]
  - NEOPLASM MALIGNANT [None]
